FAERS Safety Report 16115769 (Version 2)
Quarter: 2019Q2

REPORT INFORMATION
  Report Type: Spontaneous
  Country: IT (occurrence: IT)
  Receive Date: 20190326
  Receipt Date: 20190415
  Transmission Date: 20190711
  Serious: Yes (Death)
  Sender: FDA-Public Use
  Company Number: IT-CELLTRION INC.-2019IT019603

PATIENT

DRUGS (6)
  1. RITUXIMAB (UNKNOWN) [Suspect]
     Active Substance: RITUXIMAB
     Dosage: 1000 MG, MONTHLY [2 INFUSIONS]
     Route: 042
  2. HUMAN IMMUNOGLOBULIN IV (INN) [Suspect]
     Active Substance: HUMAN IMMUNOGLOBULIN G
     Indication: CENTRAL NERVOUS SYSTEM VASCULITIS
     Dosage: 20 G, 1X/DAY[FOR 5 DAYS]
     Route: 042
  3. CYCLOPHOSPHAMIDE. [Suspect]
     Active Substance: CYCLOPHOSPHAMIDE
     Dosage: 750 MG, DAILY
     Route: 065
     Dates: start: 201110, end: 201203
  4. METHYLPREDNISOLONE. [Suspect]
     Active Substance: METHYLPREDNISOLONE
     Dosage: 750 MG, DAILY [6 CYCLES, 4500 MG]
     Route: 048
     Dates: start: 201110, end: 201203
  5. CYCLOPHOSPHAMIDE. [Suspect]
     Active Substance: CYCLOPHOSPHAMIDE
     Dosage: TOTALLING ABOUT 16 GRAMS
     Dates: start: 201301, end: 201308
  6. METHYLPREDNISOLONE. [Suspect]
     Active Substance: METHYLPREDNISOLONE
     Dosage: 750 MG, QD 6 CYCLES TOTAL
     Route: 048
     Dates: start: 201301, end: 201308

REACTIONS (1)
  - Drug ineffective for unapproved indication [Fatal]
